FAERS Safety Report 9153489 (Version 1)
Quarter: 2013Q1

REPORT INFORMATION
  Report Type: Report from Study
  Country: BR (occurrence: BR)
  Receive Date: 20130311
  Receipt Date: 20130311
  Transmission Date: 20140127
  Serious: Yes (Other)
  Sender: FDA-Public Use
  Company Number: BR-SANOFI-AVENTIS-2013SA004739

PATIENT
  Sex: Female
  Weight: 68 kg

DRUGS (8)
  1. LANTUS [Suspect]
     Indication: TYPE 2 DIABETES MELLITUS
     Dosage: BEFORE BREAKFAST
     Route: 058
     Dates: start: 2008
  2. AUTOPEN 24 [Suspect]
     Indication: DEVICE THERAPY
  3. HUMALOG [Concomitant]
     Indication: DIABETES MELLITUS
     Route: 058
  4. ROSUVASTATIN CALCIUM [Concomitant]
     Indication: BLOOD CHOLESTEROL
     Route: 048
  5. FERROUS SULPHATE [Concomitant]
     Indication: ANAEMIA
  6. BENICAR [Concomitant]
     Indication: CARDIAC DISORDER
     Route: 048
  7. FUROSEMIDE [Concomitant]
     Indication: POLYURIA
     Route: 048
  8. CARVEDILOL [Concomitant]
     Indication: CARDIAC DISORDER
     Route: 048

REACTIONS (3)
  - Vitreous haemorrhage [Recovered/Resolved]
  - Blindness [Recovered/Resolved]
  - Diabetic retinopathy [Recovered/Resolved]
